FAERS Safety Report 25278607 (Version 4)
Quarter: 2025Q2

REPORT INFORMATION
  Report Type: Report from Study
  Country: ES (occurrence: ES)
  Receive Date: 20250507
  Receipt Date: 20250618
  Transmission Date: 20250716
  Serious: Yes (Other)
  Sender: ABBVIE
  Company Number: ES-ABBVIE-6266771

PATIENT
  Age: 66 Year
  Sex: Female

DRUGS (4)
  1. CARBIDOPA\LEVODOPA [Suspect]
     Active Substance: CARBIDOPA\LEVODOPA
     Indication: Parkinson^s disease
     Route: 050
     Dates: start: 20230112
  2. CARBIDOPA\LEVODOPA [Suspect]
     Active Substance: CARBIDOPA\LEVODOPA
  3. AMANTADINE [Concomitant]
     Active Substance: AMANTADINE
     Indication: Parkinson^s disease
     Route: 048
     Dates: start: 20250430
  4. INBRIJA [Concomitant]
     Active Substance: LEVODOPA
     Indication: Parkinson^s disease
     Dates: start: 20250430

REACTIONS (8)
  - Tremor [Recovering/Resolving]
  - Device issue [Unknown]
  - Anxiety [Recovering/Resolving]
  - Therapeutic product effect incomplete [Unknown]
  - Musculoskeletal stiffness [Recovering/Resolving]
  - On and off phenomenon [Recovering/Resolving]
  - Discomfort [Recovering/Resolving]
  - General symptom [Unknown]

NARRATIVE: CASE EVENT DATE: 20250101
